FAERS Safety Report 20055021 (Version 1)
Quarter: 2021Q4

REPORT INFORMATION
  Report Type: Spontaneous
  Country: None (occurrence: US)
  Receive Date: 20211110
  Receipt Date: 20211110
  Transmission Date: 20220304
  Serious: Yes (Death)
  Sender: FDA-Public Use
  Company Number: US-Avion Pharmaceuticals, LLC-2121706

PATIENT
  Age: 17 Year
  Sex: Female

DRUGS (1)
  1. GLOPERBA [Suspect]
     Active Substance: COLCHICINE
     Indication: Pain
     Route: 065

REACTIONS (6)
  - Vomiting [Fatal]
  - Diarrhoea [Fatal]
  - Abdominal pain [Fatal]
  - Back pain [Fatal]
  - Aspiration [Fatal]
  - Death [Fatal]
